FAERS Safety Report 11139514 (Version 1)
Quarter: 2015Q2

REPORT INFORMATION
  Report Type: Spontaneous
  Country: CN (occurrence: CN)
  Receive Date: 20150527
  Receipt Date: 20150527
  Transmission Date: 20150821
  Serious: Yes (Death, Other)
  Sender: FDA-Public Use
  Company Number: CN-CELGENE-035-21660-13094001

PATIENT

DRUGS (2)
  1. NEDAPLATIN [Suspect]
     Active Substance: NEDAPLATIN
     Indication: NON-SMALL CELL LUNG CANCER
     Dosage: 20 MILLIGRAM/SQ. METER
     Route: 065
  2. ABRAXANE [Suspect]
     Active Substance: PACLITAXEL
     Indication: NON-SMALL CELL LUNG CANCER
     Dosage: 130 MILLIGRAM/SQ. METER
     Route: 041

REACTIONS (15)
  - Neutropenia [Unknown]
  - Fatigue [Unknown]
  - Haemoglobin decreased [Unknown]
  - Nonspecific reaction [Unknown]
  - Myalgia [Unknown]
  - Thrombocytopenia [Unknown]
  - Vomiting [Unknown]
  - Alopecia [Unknown]
  - Non-small cell lung cancer [Unknown]
  - Death [Fatal]
  - Hypoaesthesia [Unknown]
  - Neuropathy peripheral [Unknown]
  - White blood cell disorder [Unknown]
  - Nausea [Unknown]
  - Arthralgia [Unknown]
